FAERS Safety Report 15247857 (Version 1)
Quarter: 2018Q3

REPORT INFORMATION
  Report Type: Spontaneous
  Country: US (occurrence: US)
  Receive Date: 20180807
  Receipt Date: 20180807
  Transmission Date: 20181010
  Serious: No
  Sender: FDA-Public Use
  Company Number: US-TEVA-2018-US-937233

PATIENT
  Sex: Female

DRUGS (1)
  1. VALSARTAN W/HYDROCHLOROTHIAZIDE [Suspect]
     Active Substance: HYDROCHLOROTHIAZIDE\VALSARTAN
     Indication: BLOOD PRESSURE MEASUREMENT
     Dosage: DOSE STRENGTH: 320/25MG
     Dates: start: 2013

REACTIONS (1)
  - Mammogram abnormal [Unknown]

NARRATIVE: CASE EVENT DATE: 20180726
